FAERS Safety Report 5896933-X (Version None)
Quarter: 2008Q3

REPORT INFORMATION
  Report Type: 
  Country: None (occurrence: None)
  Receive Date: 20080924
  Receipt Date: 20080222
  Transmission Date: 20090109
  Serious: Yes (Other)
  Sender: FDA-Public Use
  Company Number: US-ASTRAZENECA-2008UW03746

PATIENT
  Age: 57 Year
  Sex: Female
  Weight: 83.9 kg

DRUGS (3)
  1. SEROQUEL [Suspect]
     Indication: INSOMNIA
     Route: 048
     Dates: start: 20080201
  2. LAMICTAL [Concomitant]
     Indication: CONVULSION
  3. DILANTIN [Concomitant]
     Indication: CONVULSION

REACTIONS (1)
  - CONVULSION [None]
